FAERS Safety Report 13094515 (Version 2)
Quarter: 2017Q1

REPORT INFORMATION
  Report Type: Report from Study
  Country: None (occurrence: PE)
  Receive Date: 20170106
  Receipt Date: 20170112
  Transmission Date: 20170428
  Serious: Yes (Hospitalization)
  Sender: FDA-Public Use
  Company Number: PE-ABBVIE-17P-127-1832245-00

PATIENT
  Age: 20 Month
  Sex: Male

DRUGS (2)
  1. VALPAKINE [Suspect]
     Active Substance: VALPROATE SODIUM
     Dosage: DAILY
     Route: 048
     Dates: start: 20161213
  2. VALPAKINE [Suspect]
     Active Substance: VALPROATE SODIUM
     Indication: INFANTILE SPASMS
     Dosage: DAILY
     Route: 048
     Dates: end: 20161213

REACTIONS (4)
  - Pharyngitis [Recovered/Resolved]
  - Pneumonia [Recovered/Resolved]
  - Seizure [Recovered/Resolved]
  - Unevaluable event [Recovered/Resolved]

NARRATIVE: CASE EVENT DATE: 20161213
